FAERS Safety Report 9014120 (Version 1)
Quarter: 2013Q1

REPORT INFORMATION
  Report Type: Spontaneous
  Country: DE (occurrence: DE)
  Receive Date: 20130115
  Receipt Date: 20130115
  Transmission Date: 20140127
  Serious: Yes (Other)
  Sender: FDA-Public Use
  Company Number: DE-JNJFOC-20130104832

PATIENT
  Sex: 0

DRUGS (15)
  1. ETOMIDATE [Suspect]
     Indication: GENERAL ANAESTHESIA
     Route: 042
  2. FENTANYL [Suspect]
     Indication: GENERAL ANAESTHESIA
     Route: 065
  3. MIDAZOLAM [Suspect]
     Indication: GENERAL ANAESTHESIA
     Dosage: 0.1 MG/KG FOR SEDATIVE PREMEDICATION
     Route: 065
  4. MIDAZOLAM [Suspect]
     Indication: SEDATIVE THERAPY
     Dosage: 0.1 MG/KG FOR SEDATIVE PREMEDICATION
     Route: 065
  5. THIOPENTAL [Suspect]
     Indication: GENERAL ANAESTHESIA
     Route: 065
  6. PROPOFOL [Suspect]
     Indication: GENERAL ANAESTHESIA
     Route: 042
  7. REMIFENTANIL [Suspect]
     Indication: GENERAL ANAESTHESIA
     Route: 065
  8. DESFLURANE [Suspect]
     Indication: ANAESTHESIA
     Route: 055
  9. ISOFLURANE [Suspect]
     Indication: ANAESTHESIA
     Route: 055
  10. SEVOFLURANE [Suspect]
     Indication: ANAESTHESIA
     Route: 055
  11. NITROUS OXIDE [Concomitant]
     Route: 065
  12. OPIOIDS NOS [Concomitant]
     Route: 065
  13. MUSCLE RELAXANT [Concomitant]
     Route: 065
  14. OXYGEN [Concomitant]
     Route: 065
  15. PAIN MEDICATION [Concomitant]
     Indication: PAIN
     Route: 065

REACTIONS (1)
  - Anaesthetic complication neurological [Unknown]
